FAERS Safety Report 14281029 (Version 2)
Quarter: 2018Q1

REPORT INFORMATION
  Report Type: Spontaneous
  Country: US (occurrence: US)
  Receive Date: 20171213
  Receipt Date: 20180111
  Transmission Date: 20180508
  Serious: No
  Sender: FDA-Public Use
  Company Number: US-CELGENEUS-USA-20171203600

PATIENT
  Sex: Female

DRUGS (2)
  1. PREDNISONE. [Concomitant]
     Active Substance: PREDNISONE
     Indication: PRODUCT USED FOR UNKNOWN INDICATION
     Route: 065
  2. OTEZLA [Suspect]
     Active Substance: APREMILAST
     Indication: PSORIASIS
     Dosage: 60 MILLIGRAM
     Route: 048

REACTIONS (9)
  - Therapy non-responder [Unknown]
  - Pruritus [Unknown]
  - Blister [Unknown]
  - Generalised erythema [Unknown]
  - Pyrexia [Unknown]
  - Pain [Unknown]
  - Psoriasis [Unknown]
  - Skin haemorrhage [Unknown]
  - Nausea [Unknown]
